FAERS Safety Report 21097201 (Version 1)
Quarter: 2022Q3

REPORT INFORMATION
  Report Type: Spontaneous
  Country: IR (occurrence: IR)
  Receive Date: 20220719
  Receipt Date: 20220719
  Transmission Date: 20221026
  Serious: Yes (Death, Other)
  Sender: FDA-Public Use
  Company Number: IR-SUN PHARMACEUTICAL INDUSTRIES LTD-2022R1-344632

PATIENT
  Age: 67 Year
  Sex: Female

DRUGS (8)
  1. AMPHOTERICIN B [Suspect]
     Active Substance: AMPHOTERICIN B
     Indication: Scedosporium infection
     Dosage: 350 MILLIGRAM, DAILY
     Route: 065
  2. MEROPENEM [Suspect]
     Active Substance: MEROPENEM
     Indication: Pneumonia
     Route: 065
  3. MEROPENEM [Suspect]
     Active Substance: MEROPENEM
     Indication: Pyrexia
  4. VANCOMYCIN HYDROCHLORIDE [Suspect]
     Active Substance: VANCOMYCIN HYDROCHLORIDE
     Indication: Pneumonia
     Route: 065
  5. VANCOMYCIN HYDROCHLORIDE [Suspect]
     Active Substance: VANCOMYCIN HYDROCHLORIDE
     Indication: Pyrexia
  6. VORICONAZOLE [Suspect]
     Active Substance: VORICONAZOLE
     Indication: Infection
     Dosage: 400 MILLIGRAM, DAILY
     Route: 042
  7. VORICONAZOLE [Suspect]
     Active Substance: VORICONAZOLE
     Dosage: 300 MILLIGRAM, DAILY
     Route: 042
  8. COLISTIN [Suspect]
     Active Substance: COLISTIN
     Indication: Scedosporium infection
     Route: 065

REACTIONS (1)
  - Drug ineffective [Fatal]
